FAERS Safety Report 16476011 (Version 1)
Quarter: 2019Q2

REPORT INFORMATION
  Report Type: Spontaneous
  Country: US (occurrence: US)
  Receive Date: 20190625
  Receipt Date: 20190625
  Transmission Date: 20190711
  Serious: No
  Sender: FDA-Public Use
  Company Number: US-ARRAY-2019-05770

PATIENT

DRUGS (2)
  1. BRAFTOVI [Suspect]
     Active Substance: ENCORAFENIB
     Indication: MALIGNANT MELANOMA
     Dosage: 450 MG, QD
     Route: 048
     Dates: start: 20190412
  2. MEKTOVI [Suspect]
     Active Substance: BINIMETINIB
     Indication: MALIGNANT MELANOMA
     Dosage: 45 MG, BID
     Route: 048
     Dates: start: 20190412

REACTIONS (6)
  - Menstrual disorder [Unknown]
  - Rash erythematous [Unknown]
  - Vision blurred [Unknown]
  - Product administered to patient of inappropriate age [Unknown]
  - Abdominal pain [Unknown]
  - Headache [Unknown]

NARRATIVE: CASE EVENT DATE: 20190412
